FAERS Safety Report 21494148 (Version 1)
Quarter: 2022Q4

REPORT INFORMATION
  Report Type: Report from Study
  Country: PR (occurrence: PR)
  Receive Date: 20221021
  Receipt Date: 20221021
  Transmission Date: 20230113
  Serious: No
  Sender: FDA-Public Use
  Company Number: PR-ABBVIE-4165870

PATIENT
  Sex: Male
  Weight: 75.749 kg

DRUGS (1)
  1. VENCLEXTA [Suspect]
     Active Substance: VENETOCLAX
     Indication: Acute myeloid leukaemia
     Dates: start: 20220929

REACTIONS (3)
  - Dry mouth [Unknown]
  - Cough [Unknown]
  - Decreased appetite [Unknown]
